FAERS Safety Report 23946838 (Version 2)
Quarter: 2024Q2

REPORT INFORMATION
  Report Type: Spontaneous
  Country: US (occurrence: US)
  Receive Date: 20240606
  Receipt Date: 20240619
  Transmission Date: 20240716
  Serious: No
  Sender: FDA-Public Use
  Company Number: US-ALEMBIC PHARMACUETICALS LIMITED-2024SCAL000728

PATIENT

DRUGS (1)
  1. DOCOSANOL [Suspect]
     Active Substance: DOCOSANOL
     Indication: Oral herpes
     Dosage: 10 PERCENT
     Route: 061
     Dates: end: 20240522

REACTIONS (2)
  - Incorrect route of product administration [Recovered/Resolved]
  - Product use complaint [Unknown]
